FAERS Safety Report 16239987 (Version 9)
Quarter: 2019Q4

REPORT INFORMATION
  Report Type: Spontaneous
  Country: FR (occurrence: FR)
  Receive Date: 20190425
  Receipt Date: 20191209
  Transmission Date: 20200122
  Serious: Yes (Hospitalization, Other)
  Sender: FDA-Public Use
  Company Number: FR-PFIZER INC-2019172958

PATIENT
  Age: 63 Year
  Sex: Female

DRUGS (15)
  1. BACTRIM [Suspect]
     Active Substance: SULFAMETHOXAZOLE\TRIMETHOPRIM
     Dosage: 1 DF, 3X/DAY (Q8HR)
     Route: 042
     Dates: start: 20190131, end: 20190203
  2. LANSOPRAZOLE. [Suspect]
     Active Substance: LANSOPRAZOLE
     Indication: ABDOMINAL PAIN UPPER
     Dosage: 60 MG, UNK
  3. PARACETAMOL [Concomitant]
     Active Substance: ACETAMINOPHEN
     Indication: PROPHYLAXIS
     Dosage: 1 G, UNK
     Route: 048
     Dates: start: 20190205, end: 20190208
  4. PREDNISONE. [Concomitant]
     Active Substance: PREDNISONE
     Indication: PNEUMONIA
     Dosage: 80 MG, 1X/DAY (QD)
     Route: 048
     Dates: start: 20190206, end: 20190208
  5. EFFEXOR [Concomitant]
     Active Substance: VENLAFAXINE HYDROCHLORIDE
     Indication: DEPRESSION
     Dosage: 38 MG, 1X/DAY
     Route: 048
     Dates: start: 201707
  6. GABAPENTIN. [Suspect]
     Active Substance: GABAPENTIN
     Indication: TOXIC SKIN ERUPTION
     Dosage: 100 MG, 3X/DAY (TID)
     Route: 048
     Dates: start: 20190205, end: 2019
  7. BACTRIM [Suspect]
     Active Substance: SULFAMETHOXAZOLE\TRIMETHOPRIM
     Dosage: 1 DF, 3X/DAY (UNK UNK, TID   )
     Route: 042
     Dates: start: 20190204, end: 20190208
  8. PREDNISONE. [Concomitant]
     Active Substance: PREDNISONE
     Dosage: 240 MG, UNK
  9. MACROGOL [Concomitant]
     Active Substance: POLYETHYLENE GLYCOLS
     Indication: PROPHYLAXIS
     Dosage: UNK
     Route: 048
     Dates: start: 20190205
  10. RAMIPRIL. [Concomitant]
     Active Substance: RAMIPRIL
     Indication: HYPERTENSION
     Dosage: UNK, 1X/DAY
     Route: 048
     Dates: start: 201805
  11. PDR 001 [Suspect]
     Active Substance: SPARTALIZUMAB
     Indication: NEOPLASM MALIGNANT
     Dosage: 300 MG, EVERY 3 WEEKS
     Route: 042
     Dates: start: 20181011, end: 20181227
  12. LANSOPRAZOLE. [Suspect]
     Active Substance: LANSOPRAZOLE
     Dosage: 15 MG, 1X/DAY (QD)
     Route: 048
     Dates: start: 20190205, end: 20190208
  13. PARACETAMOL [Concomitant]
     Active Substance: ACETAMINOPHEN
     Dosage: 4 G, UNK
  14. LANSOPRAZOLE. [Suspect]
     Active Substance: LANSOPRAZOLE
     Indication: PROPHYLAXIS
     Dosage: 60 MG, UNK
  15. NEURONTIN [Concomitant]
     Active Substance: GABAPENTIN
     Indication: TOXIC SKIN ERUPTION
     Dosage: 300 MG, 1X/DAY (QD)
     Route: 048
     Dates: start: 20190205

REACTIONS (2)
  - Urinary tract infection [Recovered/Resolved]
  - Toxic skin eruption [Recovered/Resolved]

NARRATIVE: CASE EVENT DATE: 20190131
